FAERS Safety Report 7768761-1 (Version None)
Quarter: 2011Q3

REPORT INFORMATION
  Report Type: 
  Country: None (occurrence: None)
  Receive Date: 20110922
  Receipt Date: 20110221
  Transmission Date: 20111222
  Serious: No
  Sender: FDA-Public Use
  Company Number: US-ASTRAZENECA-2011SE09709

PATIENT
  Age: 33 Year
  Sex: Male
  Weight: 111.1 kg

DRUGS (13)
  1. SEROQUEL XR [Suspect]
     Dosage: TWO TIMES A DAY
     Route: 048
  2. SEROQUEL XR [Suspect]
     Dosage: TWO TIMES A DAY
     Route: 048
  3. SEROQUEL XR [Suspect]
     Dosage: 50 MG IN AM AND 100 MG AT 4PM,TOTAL DAILY DOSE OF 150 MG
     Route: 048
  4. SEROQUEL XR [Suspect]
     Dosage: 50 MG IN AM AND 100 MG AT 4PM,TOTAL DAILY DOSE OF 150 MG
     Route: 048
  5. SEROQUEL XR [Suspect]
     Dosage: 50 MG IN AM AND 100 MG AT 4PM,TOTAL DAILY DOSE OF 150 MG
     Route: 048
  6. SEROQUEL XR [Suspect]
     Indication: SCHIZOPHRENIA
     Route: 048
     Dates: start: 20090101
  7. CLONAZEPAM [Concomitant]
  8. PROZAC [Concomitant]
  9. SEROQUEL XR [Suspect]
     Indication: ANXIETY
     Route: 048
     Dates: start: 20090101
  10. SEROQUEL XR [Suspect]
     Dosage: TWO TIMES A DAY
     Route: 048
  11. XANAX [Concomitant]
  12. SEROQUEL XR [Suspect]
     Indication: BIPOLAR I DISORDER
     Route: 048
     Dates: start: 20090101
  13. TRAZODONE HCL [Concomitant]

REACTIONS (1)
  - BRONCHITIS [None]
